FAERS Safety Report 9775017 (Version 1)
Quarter: 2013Q4

REPORT INFORMATION
  Report Type: Spontaneous
  Country: US (occurrence: None)
  Receive Date: 20131219
  Receipt Date: 20131219
  Transmission Date: 20140711
  Serious: Yes (Other)
  Sender: FDA-Public Use
  Company Number: None

PATIENT
  Age: 86 Year
  Sex: Female
  Weight: 72.58 kg

DRUGS (3)
  1. FLUOROURACIL [Suspect]
     Dates: start: 20131016, end: 20131021
  2. CENTRUM SILVER FOR OVER AGE 50 [Concomitant]
  3. CLORAZEPATE [Concomitant]

REACTIONS (5)
  - Burning sensation [None]
  - Insomnia [None]
  - Skin ulcer [None]
  - Skin irritation [None]
  - Pruritus [None]
